FAERS Safety Report 8221099-0 (Version None)
Quarter: 2012Q1

REPORT INFORMATION
  Report Type: 
  Country: None (occurrence: None)
  Receive Date: 20120320
  Receipt Date: 20120307
  Transmission Date: 20120608
  Serious: Yes (Hospitalization)
  Sender: FDA-Public Use
  Company Number: US-ELI_LILLY_AND_COMPANY-US201110004665

PATIENT
  Sex: Female

DRUGS (53)
  1. FORTEO [Suspect]
     Dosage: 20 UG, QD
     Dates: start: 20111101
  2. NEXIUM [Concomitant]
  3. ADVAIR DISKUS 100/50 [Concomitant]
  4. FENTANYL [Concomitant]
     Dosage: 25 MG, UNK
  5. NIFEREX-150 FORTE [Concomitant]
  6. WELCHOL [Concomitant]
  7. FORTEO [Suspect]
     Dosage: 20 UG, QD
  8. FORTEO [Suspect]
     Dosage: 20 UG, QD
     Route: 065
  9. DITROPAN [Concomitant]
  10. LYRICA [Concomitant]
     Dosage: 100 MG, TID
  11. FLEXERIL [Concomitant]
     Dosage: 5 MG, BID
  12. FORTEO [Suspect]
     Dosage: 20 UG, QD
     Dates: end: 20111104
  13. OXYBUTYNIN [Concomitant]
  14. HYDROCODONE [Concomitant]
  15. REQUIP [Concomitant]
     Indication: RESTLESS LEGS SYNDROME
  16. ATROVENT [Concomitant]
  17. ANALGESICS [Concomitant]
     Indication: PAIN
     Dosage: UNK, UNKNOWN
  18. VITAMIN D [Concomitant]
  19. ISOPTO HOMATROPINE [Concomitant]
  20. DUONEB [Concomitant]
     Indication: DYSPNOEA
  21. ACETAMINOPHEN [Concomitant]
  22. BENZONATATE [Concomitant]
  23. METOPROLOL SUCCINATE [Concomitant]
  24. SKELAXIN [Concomitant]
  25. MULTI-VITAMIN [Concomitant]
  26. CALCIUM CARBONATE [Concomitant]
  27. PREDNISONE [Concomitant]
     Dosage: 5 MG, BID
  28. OS-CAL 500 + D [Concomitant]
  29. VALTREX [Concomitant]
  30. LOSARTAN POTASSIUM [Concomitant]
     Indication: BLOOD PRESSURE
  31. MULTIPLE VITAMIN [Concomitant]
  32. MIRALAX [Concomitant]
     Indication: CONSTIPATION
  33. FORTEO [Suspect]
     Dosage: 20 UG, QD
  34. FORTEO [Suspect]
     Dosage: 20 UG, QD
  35. TOPROL-XL [Concomitant]
  36. LEVOTHYROXINE SODIUM [Concomitant]
  37. IRON [Concomitant]
  38. FOLIC ACID [Concomitant]
  39. ANALGESICS [Concomitant]
     Dosage: UNK, QD
  40. CLARITIN [Concomitant]
  41. FORTEO [Suspect]
     Indication: OSTEOPOROSIS
     Dosage: 20 UG, QD
     Dates: start: 20110101, end: 20110926
  42. CYMBALTA [Concomitant]
     Dosage: 60 MG, BID
  43. SOMA [Concomitant]
  44. MUCINEX [Concomitant]
  45. NORVASC [Concomitant]
  46. SYNTHROID [Concomitant]
  47. NORCO [Concomitant]
  48. VITAMIN B-12 [Concomitant]
  49. ASPIRIN [Concomitant]
     Dosage: 81 MG, UNKNOWN
  50. ASPIRIN [Concomitant]
     Dosage: 81 MG, QD
  51. VITAMIN D [Concomitant]
  52. METHOTREXATE [Concomitant]
     Dosage: 5 MG, 2/W
  53. PRILOSEC [Concomitant]

REACTIONS (28)
  - UNRESPONSIVE TO STIMULI [None]
  - HIATUS HERNIA [None]
  - FLATULENCE [None]
  - ASTHENIA [None]
  - DEHYDRATION [None]
  - DRY MOUTH [None]
  - CHEST PAIN [None]
  - DISCOMFORT [None]
  - CATARACT [None]
  - MALAISE [None]
  - HYPOPHAGIA [None]
  - AGGRESSION [None]
  - OEDEMA PERIPHERAL [None]
  - GASTROINTESTINAL DISORDER [None]
  - HOSPITALISATION [None]
  - HAEMORRHAGE [None]
  - VOMITING [None]
  - MENTAL STATUS CHANGES [None]
  - BACK PAIN [None]
  - DYSPNOEA [None]
  - PAIN [None]
  - SCOLIOSIS [None]
  - DIARRHOEA [None]
  - COUGH [None]
  - ABDOMINAL PAIN UPPER [None]
  - ABDOMINAL DISCOMFORT [None]
  - HYPERTENSION [None]
  - CONSTIPATION [None]
